FAERS Safety Report 9629360 (Version 1)
Quarter: 2013Q4

REPORT INFORMATION
  Report Type: Spontaneous
  Country: US (occurrence: US)
  Receive Date: 20131017
  Receipt Date: 20131017
  Transmission Date: 20140711
  Serious: No
  Sender: FDA-Public Use
  Company Number: US-ASTRAZENECA-2013SE54639

PATIENT
  Age: 68 Year
  Sex: Female
  Weight: 58.1 kg

DRUGS (4)
  1. CRESTOR [Suspect]
     Indication: MYOCARDIAL INFARCTION
     Route: 048
     Dates: start: 201306
  2. ATENOLOL [Concomitant]
     Dosage: 50 MGS
     Route: 048
  3. LISINOPRIL HCT [Concomitant]
     Dosage: 20 MGS
     Route: 048
  4. PLAVIX [Concomitant]
     Dosage: UNKNOWN
     Route: 048

REACTIONS (6)
  - Malaise [Unknown]
  - Decreased appetite [Unknown]
  - Constipation [Unknown]
  - Nausea [Unknown]
  - Abdominal pain upper [Unknown]
  - Fatigue [Unknown]
